FAERS Safety Report 23395470 (Version 1)
Quarter: 2024Q1

REPORT INFORMATION
  Report Type: Report from Study
  Country: CA (occurrence: CA)
  Receive Date: 20240112
  Receipt Date: 20240112
  Transmission Date: 20240410
  Serious: Yes (Death, Hospitalization)
  Sender: FDA-Public Use
  Company Number: CA-GILEAD-2023-0656773

PATIENT
  Sex: Female

DRUGS (7)
  1. SACITUZUMAB GOVITECAN-HZIY [Suspect]
     Active Substance: SACITUZUMAB GOVITECAN-HZIY
     Indication: Hormone receptor positive HER2 negative breast cancer
     Dosage: 280 MG
     Route: 042
     Dates: start: 20231215, end: 20231215
  2. ACETAMINOPHEN [Concomitant]
     Active Substance: ACETAMINOPHEN
     Dosage: 650 MG PO (PRIOR TRODELVY INFUSION)
  3. DIPHENHYDRAMINE [Concomitant]
     Active Substance: DIPHENHYDRAMINE
     Dosage: 50 MG PIV (PRIOR TRODELVY INFUSION)
  4. DECADRON [Concomitant]
     Active Substance: DEXAMETHASONE
     Dosage: 10 MG PIV (PRIOR TRODELVY INFUSION)
  5. FAMOTIDINE [Concomitant]
     Active Substance: FAMOTIDINE
     Dosage: 40 MG P0 (PRIOR TRODELVY INFUSION)
  6. ONDANSETRON HYDROCHLORIDE [Concomitant]
     Active Substance: ONDANSETRON HYDROCHLORIDE
     Dosage: 8 MG PO (PRIOR TRODELVY INFUSION)
  7. ENHERTU [Concomitant]
     Active Substance: FAM-TRASTUZUMAB DERUXTECAN-NXKI
     Dosage: UNK

REACTIONS (1)
  - Asthenia [Fatal]
